FAERS Safety Report 23676577 (Version 1)
Quarter: 2024Q1

REPORT INFORMATION
  Report Type: Spontaneous
  Country: US (occurrence: US)
  Receive Date: 20240327
  Receipt Date: 20240327
  Transmission Date: 20240410
  Serious: No
  Sender: FDA-Public Use
  Company Number: US-ELI_LILLY_AND_COMPANY-US202403015162

PATIENT
  Age: 69 Year
  Sex: Female
  Weight: 68.027 kg

DRUGS (3)
  1. FORTEO [Suspect]
     Active Substance: TERIPARATIDE
     Indication: Osteoporosis
     Dosage: 20 UG, UNKNOWN
     Route: 065
     Dates: start: 20231028, end: 20240206
  2. FORTEO [Suspect]
     Active Substance: TERIPARATIDE
     Indication: Osteoporosis
     Dosage: 20 UG, UNKNOWN
     Route: 065
     Dates: start: 20231028, end: 20240206
  3. FOSAMAX [Concomitant]
     Active Substance: ALENDRONATE SODIUM
     Indication: Osteoporosis
     Dosage: 1 DOSAGE FORM, WEEKLY (1/W)

REACTIONS (1)
  - Blood alkaline phosphatase increased [Unknown]
